FAERS Safety Report 14399542 (Version 2)
Quarter: 2019Q1

REPORT INFORMATION
  Report Type: Spontaneous
  Country: US (occurrence: US)
  Receive Date: 20180117
  Receipt Date: 20190207
  Transmission Date: 20190417
  Serious: No
  Sender: FDA-Public Use
  Company Number: US-JNJFOC-20171134027

PATIENT
  Age: 80 Year
  Sex: Male

DRUGS (1)
  1. ZYTIGA [Suspect]
     Active Substance: ABIRATERONE ACETATE
     Indication: PRODUCT USED FOR UNKNOWN INDICATION
     Dosage: 250MG 4 TABLETS DAILY
     Route: 048

REACTIONS (2)
  - Product dose omission [Unknown]
  - Therapy cessation [Unknown]

NARRATIVE: CASE EVENT DATE: 20171127
